FAERS Safety Report 15360525 (Version 8)
Quarter: 2019Q3

REPORT INFORMATION
  Report Type: Report from Study
  Country: US (occurrence: US)
  Receive Date: 20180907
  Receipt Date: 20190927
  Transmission Date: 20191004
  Serious: No
  Sender: FDA-Public Use
  Company Number: PHEH2018US036163

PATIENT
  Sex: Female

DRUGS (2)
  1. ILARIS [Suspect]
     Active Substance: CANAKINUMAB
     Dosage: 300 MG, Q4W
     Route: 058
  2. ILARIS [Suspect]
     Active Substance: CANAKINUMAB
     Indication: CRYOPYRIN ASSOCIATED PERIODIC SYNDROME
     Dosage: 150 MG, Q4W
     Route: 058

REACTIONS (7)
  - Arthralgia [Unknown]
  - Upper respiratory tract infection [Unknown]
  - Pain [Unknown]
  - Limb asymmetry [Unknown]
  - Peripheral swelling [Unknown]
  - Back pain [Unknown]
  - Pain in extremity [Recovering/Resolving]
